FAERS Safety Report 7885267-X (Version None)
Quarter: 2011Q4

REPORT INFORMATION
  Report Type: 
  Country: None (occurrence: None)
  Receive Date: 20111102
  Receipt Date: 20111028
  Transmission Date: 20120403
  Serious: Yes (Other)
  Sender: FDA-Public Use
  Company Number: CHPA2011US15094

PATIENT
  Age: 5 Year
  Sex: Female

DRUGS (3)
  1. VITAMINS NOS [Concomitant]
  2. ACETAMINOPHEN [Suspect]
     Indication: HEADACHE
     Dosage: 1.5 TSP, ONCE/SINGLE
     Route: 048
     Dates: start: 20111028, end: 20111028
  3. ACETAMINOPHEN [Suspect]
     Dosage: UNK, UNK
     Route: 048

REACTIONS (2)
  - BLOOD GLUCOSE INCREASED [None]
  - CONCOMITANT DISEASE AGGRAVATED [None]
